FAERS Safety Report 20700971 (Version 1)
Quarter: 2022Q2

REPORT INFORMATION
  Report Type: Spontaneous
  Country: US (occurrence: US)
  Receive Date: 20220412
  Receipt Date: 20220412
  Transmission Date: 20220721
  Serious: No
  Sender: FDA-Public Use
  Company Number: US-ABBVIE-22K-163-4302828-00

PATIENT
  Age: 82 Year
  Sex: Male

DRUGS (2)
  1. LUPRON [Suspect]
     Active Substance: LEUPROLIDE ACETATE
     Indication: Product used for unknown indication
     Route: 065
  2. XTANDI [Suspect]
     Active Substance: ENZALUTAMIDE
     Indication: Prostate cancer
     Route: 048
     Dates: start: 20211019

REACTIONS (4)
  - Lethargy [Unknown]
  - Paraesthesia [Recovered/Resolved]
  - Fatigue [Recovering/Resolving]
  - Hot flush [Recovering/Resolving]

NARRATIVE: CASE EVENT DATE: 20211001
